FAERS Safety Report 23436394 (Version 3)
Quarter: 2024Q1

REPORT INFORMATION
  Report Type: Report from Study
  Country: CN (occurrence: CN)
  Receive Date: 20240124
  Receipt Date: 20240315
  Transmission Date: 20240410
  Serious: Yes (Hospitalization, Other)
  Sender: FDA-Public Use
  Company Number: CN-TAKEDA-2024TUS005569

PATIENT
  Age: 65 Year
  Sex: Male
  Weight: 52 kg

DRUGS (15)
  1. VEDOLIZUMAB [Suspect]
     Active Substance: VEDOLIZUMAB
     Indication: Colitis ulcerative
     Dosage: 300 MILLIGRAM
     Route: 042
     Dates: start: 20230208
  2. CALCITRIOL [Concomitant]
     Active Substance: CALCITRIOL
     Indication: Inflammatory bowel disease
     Dosage: 0.5 MICROGRAM, QD
     Route: 048
     Dates: start: 20230202
  3. PREDNISONE ACETATE [Concomitant]
     Active Substance: PREDNISONE ACETATE
     Indication: Inflammatory bowel disease
     Dosage: 50 MILLIGRAM, QD
     Route: 048
     Dates: start: 20230222
  4. PREDNISONE ACETATE [Concomitant]
     Active Substance: PREDNISONE ACETATE
     Dosage: 45 MILLIGRAM, QD
     Route: 048
     Dates: start: 2023
  5. PREDNISONE ACETATE [Concomitant]
     Active Substance: PREDNISONE ACETATE
     Dosage: 40 MILLIGRAM, QD
     Route: 048
     Dates: start: 2023
  6. PREDNISONE ACETATE [Concomitant]
     Active Substance: PREDNISONE ACETATE
     Dosage: 35 MILLIGRAM, QD
     Route: 048
     Dates: start: 2023
  7. PREDNISONE ACETATE [Concomitant]
     Active Substance: PREDNISONE ACETATE
     Dosage: 30 MILLIGRAM, QD
     Route: 048
     Dates: start: 2023
  8. PREDNISONE ACETATE [Concomitant]
     Active Substance: PREDNISONE ACETATE
     Dosage: 40 MILLIGRAM, QD
     Route: 048
     Dates: start: 20240116
  9. MESALAMINE [Concomitant]
     Active Substance: MESALAMINE
     Indication: Inflammatory bowel disease
     Dosage: 2 GRAM, BID
     Route: 048
     Dates: start: 20230130
  10. POTASSIUM CHLORIDE [Concomitant]
     Active Substance: POTASSIUM CHLORIDE
     Indication: Inflammatory bowel disease
     Dosage: 1 GRAM, BID
     Route: 048
     Dates: start: 20230130
  11. POTASSIUM CHLORIDE [Concomitant]
     Active Substance: POTASSIUM CHLORIDE
     Dosage: 1 GRAM, BID
     Route: 048
     Dates: start: 20231216, end: 20240114
  12. CALCIUM CARBONATE\CHOLECALCIFEROL [Concomitant]
     Active Substance: CALCIUM CARBONATE\CHOLECALCIFEROL
     Indication: Inflammatory bowel disease
     Dosage: 600 MILLIGRAM, QD
     Route: 048
     Dates: start: 20231216
  13. RABEPRAZOLE SODIUM [Concomitant]
     Active Substance: RABEPRAZOLE SODIUM
     Indication: Inflammatory bowel disease
     Dosage: 10 MILLIGRAM, QD
     Route: 048
     Dates: start: 20231216
  14. ALFACALCIDOL [Concomitant]
     Active Substance: ALFACALCIDOL
     Indication: Inflammatory bowel disease
     Dosage: 0.5 MICROGRAM, QD
     Route: 048
     Dates: start: 20231216
  15. METHYLPREDNISOLONE [Concomitant]
     Active Substance: METHYLPREDNISOLONE
     Indication: Inflammatory bowel disease
     Dosage: 36 MILLIGRAM, QD
     Route: 048
     Dates: start: 20231216, end: 20240114

REACTIONS (1)
  - Colitis ulcerative [Recovered/Resolved]

NARRATIVE: CASE EVENT DATE: 20231017
